FAERS Safety Report 8421252-7 (Version None)
Quarter: 2012Q2

REPORT INFORMATION
  Report Type: 
  Country: None (occurrence: None)
  Receive Date: 20120608
  Receipt Date: 20120605
  Transmission Date: 20120825
  Serious: Yes (Death, Hospitalization)
  Sender: FDA-Public Use
  Company Number: BE-EISAI INC-E7389-01256-CLI-BE

PATIENT
  Sex: Female
  Weight: 80 kg

DRUGS (8)
  1. EPIRUBICIN HYDROCHLORIDE [Suspect]
     Indication: BREAST CANCER
     Route: 041
     Dates: start: 20110516, end: 20110530
  2. CYMBALTA [Concomitant]
     Route: 048
     Dates: start: 20081223
  3. D-CURE [Concomitant]
     Route: 048
     Dates: start: 20081223
  4. OMEPRAZOLE [Concomitant]
     Route: 048
     Dates: start: 20100503
  5. LYRICA [Concomitant]
     Route: 048
     Dates: start: 20100617
  6. SYMBICORT [Concomitant]
     Route: 055
     Dates: start: 20100508
  7. SPIRIVA [Concomitant]
     Route: 055
     Dates: start: 20100430
  8. DUOVENT [Concomitant]
     Route: 055
     Dates: start: 20080430, end: 20110531

REACTIONS (1)
  - CHRONIC OBSTRUCTIVE PULMONARY DISEASE [None]
